FAERS Safety Report 7272089-6 (Version None)
Quarter: 2011Q1

REPORT INFORMATION
  Report Type: 
  Country: None (occurrence: None)
  Receive Date: 20110131
  Receipt Date: 20110131
  Transmission Date: 20110831
  Serious: No
  Sender: FDA-Public Use
  Company Number: None

PATIENT
  Age: 42 Year
  Sex: Male

DRUGS (1)
  1. RALTEGRAVIR [Suspect]
     Indication: HIV INFECTION
     Dosage: 400 MG BID PO
     Route: 048
     Dates: start: 20101116, end: 20110106

REACTIONS (1)
  - RASH [None]
